FAERS Safety Report 21553559 (Version 2)
Quarter: 2024Q1

REPORT INFORMATION
  Report Type: Spontaneous
  Country: AU (occurrence: AU)
  Receive Date: 20221104
  Receipt Date: 20240322
  Transmission Date: 20240410
  Serious: Yes (Death, Hospitalization, Other)
  Sender: FDA-Public Use
  Company Number: AU-009507513-2210AUS009672

PATIENT
  Age: 64 Year
  Sex: Male

DRUGS (5)
  1. VECURONIUM BROMIDE [Suspect]
     Active Substance: VECURONIUM BROMIDE
     Dosage: 10 MILLIGRAM, ONCE
  2. SUGAMMADEX SODIUM [Suspect]
     Active Substance: SUGAMMADEX SODIUM
     Dosage: 200 MILLIGRAM, ONCE
  3. MIDAZOLAM [Suspect]
     Active Substance: MIDAZOLAM
     Dosage: 2 MILLIGRAM
  4. OXYCODONE [Suspect]
     Active Substance: OXYCODONE\OXYCODONE HYDROCHLORIDE
     Dosage: 3 MILLIGRAM
  5. PROPOFOL [Suspect]
     Active Substance: PROPOFOL
     Dosage: 100 MILLIGRAM

REACTIONS (12)
  - Brain injury [Fatal]
  - Hypoventilation [Unknown]
  - Endotracheal intubation [Unknown]
  - Airway complication of anaesthesia [Unknown]
  - Blood pressure fluctuation [Unknown]
  - Tachycardia [Unknown]
  - Blood pressure immeasurable [Unknown]
  - Pulse absent [Unknown]
  - Anaphylactic reaction [Unknown]
  - Cardiac arrest [Recovered/Resolved]
  - Ventricular fibrillation [Unknown]
  - Mechanical ventilation complication [Unknown]
